FAERS Safety Report 19114790 (Version 1)
Quarter: 2021Q2

REPORT INFORMATION
  Report Type: Spontaneous
  Country: US (occurrence: US)
  Receive Date: 20210408
  Receipt Date: 20210408
  Transmission Date: 20210717
  Serious: Yes (Other)
  Sender: FDA-Public Use
  Company Number: US-AMGEN INC.-USASP2021051494

PATIENT
  Sex: Female

DRUGS (4)
  1. AIMOVIG [Suspect]
     Active Substance: ERENUMAB-AOOE
     Indication: PRODUCT USED FOR UNKNOWN INDICATION
     Dosage: 140 MILLIGRAM, QMO
     Route: 065
  2. BOTOX [Concomitant]
     Active Substance: ONABOTULINUMTOXINA
  3. CANDESARTAN. [Concomitant]
     Active Substance: CANDESARTAN
  4. UBRELVY [Concomitant]
     Active Substance: UBROGEPANT

REACTIONS (2)
  - Fatigue [Unknown]
  - Coeliac disease [Not Recovered/Not Resolved]
